FAERS Safety Report 6998691-4 (Version None)
Quarter: 2010Q3

REPORT INFORMATION
  Report Type: 
  Country: None (occurrence: None)
  Receive Date: 20100920
  Receipt Date: 20100616
  Transmission Date: 20110219
  Serious: Yes (Other)
  Sender: FDA-Public Use
  Company Number: US-ASTRAZENECA-2009SE08619

PATIENT
  Age: 525 Month
  Sex: Female
  Weight: 113.9 kg

DRUGS (5)
  1. SEROQUEL [Suspect]
     Indication: INSOMNIA
     Dosage: 25 MG 3 TO 4 PER DAY
     Route: 048
     Dates: start: 20070828, end: 20071023
  2. SEROQUEL [Suspect]
     Indication: MENTAL DISORDER
     Dosage: 25 MG 3 TO 4 PER DAY
     Route: 048
     Dates: start: 20070828, end: 20071023
  3. ABILIFY [Concomitant]
     Dates: start: 20090101
  4. EFFEXOR [Concomitant]
     Dates: start: 20080101
  5. ATIVAN [Concomitant]
     Dates: start: 20080101

REACTIONS (2)
  - BLOOD GLUCOSE INCREASED [None]
  - PANCREATITIS [None]
